FAERS Safety Report 9893343 (Version 4)
Quarter: 2015Q3

REPORT INFORMATION
  Report Type: Report from Study
  Country: US (occurrence: US)
  Receive Date: 20140213
  Receipt Date: 20150824
  Transmission Date: 20151125
  Serious: Yes (Other)
  Sender: FDA-Public Use
  Company Number: US-JNJFOC-20140200030

PATIENT
  Age: 62 Year
  Sex: Female

DRUGS (1)
  1. STELARA [Suspect]
     Active Substance: USTEKINUMAB
     Indication: PSORIASIS
     Route: 058
     Dates: start: 20130619, end: 20150603

REACTIONS (2)
  - Arthralgia [Unknown]
  - Cellulitis [Unknown]

NARRATIVE: CASE EVENT DATE: 20131101
